FAERS Safety Report 7529955-3 (Version None)
Quarter: 2011Q2

REPORT INFORMATION
  Report Type: 
  Country: None (occurrence: None)
  Receive Date: 20110607
  Receipt Date: 20110606
  Transmission Date: 20111010
  Serious: Yes (Hospitalization)
  Sender: FDA-Public Use
  Company Number: GB-AMGEN-GBRSP2010000687

PATIENT
  Sex: Female

DRUGS (7)
  1. EPIRUBICIN [Concomitant]
     Indication: BREAST CANCER
  2. FLUOROURACIL [Concomitant]
     Indication: BREAST CANCER
  3. RITUXIMAB [Concomitant]
     Indication: CHEMOTHERAPY
  4. CYCLOPHOSPHAMIDE [Concomitant]
     Indication: CHEMOTHERAPY
  5. CYCLOPHOSPHAMIDE [Concomitant]
     Indication: BREAST CANCER
  6. NEULASTA [Suspect]
     Dosage: 6 MG, UNK
     Route: 058
     Dates: start: 20101012
  7. PREDNISOLONE [Concomitant]
     Indication: CHEMOTHERAPY

REACTIONS (1)
  - NEUTROPENIA [None]
